FAERS Safety Report 6924165-2 (Version None)
Quarter: 2010Q3

REPORT INFORMATION
  Report Type: 
  Country: None (occurrence: None)
  Receive Date: 20100812
  Receipt Date: 20100812
  Transmission Date: 20110219
  Serious: Yes (Other)
  Sender: FDA-Public Use
  Company Number: None

PATIENT
  Sex: Female
  Weight: 77.1115 kg

DRUGS (2)
  1. HALDOL [Suspect]
     Dosage: SHOTS MONTHLY
  2. RISPERDAL [Suspect]
     Dosage: SHOTS MONTHLY

REACTIONS (5)
  - ABASIA [None]
  - APHASIA [None]
  - HAEMATEMESIS [None]
  - PARKINSON'S DISEASE [None]
  - TREMOR [None]
